FAERS Safety Report 22017677 (Version 3)
Quarter: 2023Q1

REPORT INFORMATION
  Report Type: Spontaneous
  Country: IN (occurrence: IN)
  Receive Date: 20230221
  Receipt Date: 20230323
  Transmission Date: 20230418
  Serious: Yes (Death, Other)
  Sender: FDA-Public Use
  Company Number: IN-TAKEDA-2023TUS018594

PATIENT
  Age: 12 Year
  Sex: Male
  Weight: 30 kg

DRUGS (2)
  1. ELAPRASE [Suspect]
     Active Substance: IDURSULFASE
     Indication: Mucopolysaccharidosis II
     Dosage: UNK
     Route: 065
     Dates: start: 20140930
  2. ELAPRASE [Suspect]
     Active Substance: IDURSULFASE
     Dosage: 3 DOSAGE FORM, 1/WEEK
     Route: 042
     Dates: start: 20141006, end: 20230128

REACTIONS (6)
  - Tracheal stenosis [Fatal]
  - Aortic stenosis [Fatal]
  - Laryngeal stenosis [Fatal]
  - Pneumonia [Fatal]
  - Respiratory failure [Fatal]
  - Cardio-respiratory arrest [Fatal]

NARRATIVE: CASE EVENT DATE: 20230218
